FAERS Safety Report 9055871 (Version 1)
Quarter: 2013Q1

REPORT INFORMATION
  Report Type: Spontaneous
  Country: US (occurrence: US)
  Receive Date: 20130206
  Receipt Date: 20130206
  Transmission Date: 20140127
  Serious: No
  Sender: FDA-Public Use
  Company Number: US-ALLERGAN-1202635US

PATIENT
  Age: 47 Year
  Sex: Male

DRUGS (1)
  1. RESTASIS? [Suspect]
     Indication: POSTOPERATIVE CARE
     Dosage: 2 GTT, BID
     Route: 047
     Dates: start: 20120206, end: 20120214

REACTIONS (2)
  - Urticaria [Recovered/Resolved]
  - Urticaria [Recovered/Resolved]
